FAERS Safety Report 4262315-X (Version None)
Quarter: 2004Q1

REPORT INFORMATION
  Report Type: 
  Country: None (occurrence: None)
  Receive Date: 20040102
  Receipt Date: 20031128
  Transmission Date: 20041129
  Serious: Yes (Hospitalization, Other)
  Sender: FDA-Public Use
  Company Number: PHNR2003AU01666

PATIENT
  Sex: Male

DRUGS (3)
  1. CYCLOSPORINE [Suspect]
     Indication: RENAL TRANSPLANT
     Dosage: UNSPECIFIED
     Dates: start: 20031112
  2. CELLCEPT [Suspect]
     Dosage: UNSPECIFIED
  3. PREDNISOLONE [Concomitant]
     Dosage: UNSPECIFIED

REACTIONS (1)
  - ILEUS [None]
